FAERS Safety Report 12854145 (Version 1)
Quarter: 2016Q4

REPORT INFORMATION
  Report Type: Spontaneous
  Country: FR (occurrence: FR)
  Receive Date: 20161017
  Receipt Date: 20161017
  Transmission Date: 20170207
  Serious: Yes (Other)
  Sender: FDA-Public Use
  Company Number: FR-ABBVIE-16P-056-1755153-00

PATIENT
  Age: 10 Year
  Sex: Male

DRUGS (1)
  1. DEPAKINE [Suspect]
     Active Substance: VALPROATE SODIUM
     Indication: MATERNAL EXPOSURE TIMING UNSPECIFIED
     Route: 064

REACTIONS (6)
  - Dysgraphia [Unknown]
  - Judgement impaired [Unknown]
  - Reading disorder [Unknown]
  - Gait disturbance [Unknown]
  - Movement disorder [Unknown]
  - Foetal exposure during pregnancy [Unknown]
